FAERS Safety Report 7009976-X (Version None)
Quarter: 2010Q3

REPORT INFORMATION
  Report Type: 
  Country: None (occurrence: None)
  Receive Date: 20100923
  Receipt Date: 20100910
  Transmission Date: 20110219
  Serious: Yes (Hospitalization)
  Sender: FDA-Public Use
  Company Number: JP-MERCK-1009USA03046

PATIENT
  Age: 63 Year
  Sex: Female

DRUGS (6)
  1. JANUVIA [Suspect]
     Indication: TYPE 2 DIABETES MELLITUS
     Route: 048
     Dates: start: 20100831, end: 20100902
  2. AMARYL [Concomitant]
     Route: 065
  3. GLYCORAN [Concomitant]
     Route: 065
  4. LASIX [Concomitant]
     Route: 065
  5. OLMETEC [Concomitant]
     Route: 065
  6. LEVEMIR [Concomitant]
     Route: 065

REACTIONS (1)
  - DYSPNOEA [None]
